FAERS Safety Report 5390578-6 (Version None)
Quarter: 2007Q3

REPORT INFORMATION
  Report Type: 
  Country: None (occurrence: None)
  Receive Date: 20070718
  Receipt Date: 20061228
  Transmission Date: 20080115
  Serious: No
  Sender: FDA-Public Use
  Company Number: US-KINGPHARMUSA00001-K200601633

PATIENT

DRUGS (4)
  1. LEVOXYL [Suspect]
     Indication: THYROID DISORDER
     Dosage: 100 MCG, QD
     Route: 048
     Dates: end: 20060101
  2. LEVOXYL [Suspect]
     Dosage: 112 MCG, QD
     Route: 048
     Dates: start: 20060101
  3. VASOTEC [Concomitant]
     Indication: HYPERTENSION
     Dosage: 20MG AM, 10MG PM, QD
     Route: 048
  4. CALCITRIOL [Concomitant]
     Indication: BLOOD CALCIUM DECREASED
     Dosage: UNK, QD
     Route: 048

REACTIONS (1)
  - CALCINOSIS [None]
